FAERS Safety Report 11468813 (Version 1)
Quarter: 2015Q3

REPORT INFORMATION
  Report Type: Spontaneous
  Country: US (occurrence: US)
  Receive Date: 20150908
  Receipt Date: 20150908
  Transmission Date: 20151125
  Serious: No
  Sender: FDA-Public Use
  Company Number: US-009507513-1508USA006582

PATIENT
  Age: 19 Year
  Sex: Female
  Weight: 76.64 kg

DRUGS (2)
  1. NEXPLANON [Suspect]
     Active Substance: ETONOGESTREL
     Dosage: UNK
     Route: 059
     Dates: start: 20150615, end: 20150615
  2. NEXPLANON [Suspect]
     Active Substance: ETONOGESTREL
     Dosage: UNK
     Route: 059
     Dates: start: 2015

REACTIONS (2)
  - Complication of device insertion [Unknown]
  - No adverse event [Unknown]

NARRATIVE: CASE EVENT DATE: 20150615
